FAERS Safety Report 10305719 (Version 1)
Quarter: 2014Q3

REPORT INFORMATION
  Report Type: Spontaneous
  Country: US (occurrence: US)
  Receive Date: 20140715
  Receipt Date: 20140715
  Transmission Date: 20150326
  Serious: No
  Sender: FDA-Public Use
  Company Number: US-GLAXOSMITHKLINE-A1069219A

PATIENT
  Age: 78 Year
  Sex: Female

DRUGS (4)
  1. COMMIT [Suspect]
     Active Substance: NICOTINE
     Indication: EX-TOBACCO USER
     Route: 048
  2. NICORETTE [Suspect]
     Active Substance: NICOTINE
     Indication: EX-TOBACCO USER
     Route: 048
  3. NICORETTE [Suspect]
     Active Substance: NICOTINE
     Indication: EX-TOBACCO USER
     Route: 048
  4. WALGREENS LOZENGE ORIGINAL 4 MG [Suspect]
     Active Substance: NICOTINE
     Indication: EX-TOBACCO USER
     Route: 048

REACTIONS (5)
  - Oral discomfort [Recovered/Resolved]
  - Drug ineffective [Unknown]
  - Oral pain [Recovered/Resolved]
  - Drug administration error [Unknown]
  - Nicotine dependence [Not Recovered/Not Resolved]
